FAERS Safety Report 15172133 (Version 2)
Quarter: 2018Q3

REPORT INFORMATION
  Report Type: Spontaneous
  Country: US (occurrence: US)
  Receive Date: 20180720
  Receipt Date: 20180920
  Transmission Date: 20181010
  Serious: Yes (Hospitalization, Other)
  Sender: FDA-Public Use
  Company Number: US-WEST-WARD PHARMACEUTICALS CORP.-US-H14001-18-05838

PATIENT
  Age: 45 Year
  Sex: Male
  Weight: 102.5 kg

DRUGS (3)
  1. AMLODIPINE [Suspect]
     Active Substance: AMLODIPINE BESYLATE
     Indication: HYPERTENSION
     Route: 065
  2. FLUTICASONE PROPIONATE. [Suspect]
     Active Substance: FLUTICASONE PROPIONATE
     Indication: SINUS DISORDER
     Route: 045
     Dates: start: 201802, end: 2018
  3. FLONASE ALLERGY RELIEF [Suspect]
     Active Substance: FLUTICASONE PROPIONATE
     Indication: PRODUCT USED FOR UNKNOWN INDICATION
     Route: 045
     Dates: start: 20180201, end: 20180401

REACTIONS (22)
  - Angina pectoris [Recovered/Resolved]
  - Night sweats [Unknown]
  - Visual impairment [Unknown]
  - Blood glucose abnormal [Unknown]
  - Off label use [Recovered/Resolved]
  - Burning sensation [Unknown]
  - Palpitations [Unknown]
  - Nausea [Recovered/Resolved]
  - Dyspnoea [Recovered/Resolved]
  - Lung disorder [Unknown]
  - Paraesthesia [Unknown]
  - Blood potassium abnormal [Unknown]
  - Hypoaesthesia [Unknown]
  - Sinus tachycardia [Unknown]
  - Tremor [Unknown]
  - Anxiety [Recovered/Resolved]
  - Tachycardia [Recovered/Resolved]
  - Hypertension [Recovered/Resolved]
  - Pain [Unknown]
  - Panic attack [Not Recovered/Not Resolved]
  - Peripheral coldness [Unknown]
  - Neck pain [Unknown]

NARRATIVE: CASE EVENT DATE: 20180214
